FAERS Safety Report 23869798 (Version 1)
Quarter: 2024Q2

REPORT INFORMATION
  Report Type: Spontaneous
  Country: IT (occurrence: None)
  Receive Date: 20240517
  Receipt Date: 20240517
  Transmission Date: 20240716
  Serious: Yes (Other)
  Sender: FDA-Public Use
  Company Number: 2024A112101

PATIENT
  Sex: Female

DRUGS (1)
  1. TEZEPELUMAB [Suspect]
     Active Substance: TEZEPELUMAB
     Indication: Asthma
     Route: 058

REACTIONS (1)
  - Ill-defined disorder [Not Recovered/Not Resolved]
